FAERS Safety Report 4892346-8 (Version None)
Quarter: 2006Q1

REPORT INFORMATION
  Report Type: 
  Country: None (occurrence: None)
  Receive Date: 20060126
  Receipt Date: 19990224
  Transmission Date: 20060701
  Serious: Yes (Hospitalization, Disabling)
  Sender: FDA-Public Use
  Company Number: JP-GLAXOSMITHKLINE-B0220192A

PATIENT
  Age: 46 Year
  Sex: Male

DRUGS (3)
  1. 49653 [Suspect]
     Indication: DIABETES MELLITUS
     Dosage: 4MG PER DAY
     Route: 048
     Dates: start: 19981121, end: 19990303
  2. GLIBENCLAMIDE [Concomitant]
     Indication: DIABETES MELLITUS
     Dosage: 2.5MG PER DAY
     Dates: start: 19980822
  3. SIMVASTATIN [Concomitant]
     Dosage: 5MG PER DAY
     Dates: start: 19960906

REACTIONS (2)
  - ANGINA PECTORIS [None]
  - CORONARY ARTERY STENOSIS [None]
